FAERS Safety Report 16850929 (Version 1)
Quarter: 2019Q3

REPORT INFORMATION
  Report Type: Spontaneous
  Country: ES (occurrence: ES)
  Receive Date: 20190925
  Receipt Date: 20190925
  Transmission Date: 20191005
  Serious: Yes (Other)
  Sender: FDA-Public Use
  Company Number: ES-009507513-1909ESP009596

PATIENT

DRUGS (4)
  1. DANURAVIR [Suspect]
     Active Substance: DARUNAVIR
     Indication: ANTIRETROVIRAL THERAPY
     Dosage: UNK
     Dates: start: 1995
  2. MARAVIROC [Suspect]
     Active Substance: MARAVIROC
     Indication: ANTIRETROVIRAL THERAPY
     Dosage: UNK
     Dates: start: 1995
  3. RALTEGRAVIR POTASSIUM [Suspect]
     Active Substance: RALTEGRAVIR POTASSIUM
     Indication: ANTIRETROVIRAL THERAPY
     Dosage: UNK
     Route: 048
     Dates: start: 1995
  4. RITONAVIR. [Suspect]
     Active Substance: RITONAVIR
     Indication: ANTIRETROVIRAL THERAPY
     Dosage: UNK
     Dates: start: 1995

REACTIONS (3)
  - Treatment noncompliance [Unknown]
  - Pathogen resistance [Unknown]
  - Blood HIV RNA increased [Unknown]
